FAERS Safety Report 5500051-X (Version None)
Quarter: 2007Q4

REPORT INFORMATION
  Report Type: 
  Country: None (occurrence: None)
  Receive Date: 20071024
  Receipt Date: 20071011
  Transmission Date: 20080405
  Serious: Yes (Hospitalization)
  Sender: FDA-Public Use
  Company Number: RENA-12322

PATIENT
  Age: 40 Year
  Sex: Female
  Weight: 55 kg

DRUGS (4)
  1. RENAGEL [Suspect]
     Indication: HYPERPHOSPHATAEMIA
     Dosage: 1.6 G QID PO
     Route: 048
     Dates: start: 20050101
  2. CALCIUM CARBONATE [Concomitant]
  3. ZOPICLONE [Concomitant]
  4. AMLODIPINE [Concomitant]

REACTIONS (2)
  - BLOOD PHOSPHORUS INCREASED [None]
  - PARATHYROIDECTOMY [None]
